FAERS Safety Report 7288174-9 (Version None)
Quarter: 2011Q1

REPORT INFORMATION
  Report Type: 
  Country: None (occurrence: None)
  Receive Date: 20110211
  Receipt Date: 20110113
  Transmission Date: 20110831
  Serious: Yes (Death, Life-Threatening, Hospitalization)
  Sender: FDA-Public Use
  Company Number: US-ROCHE-698571

PATIENT
  Sex: Female

DRUGS (4)
  1. PACLITAXEL [Suspect]
     Indication: OVARIAN CANCER METASTATIC
     Dosage: DOSE GIVEN OVER 3 HOUR ON DAY 1  CYCLE: 21 DAYS
     Route: 042
     Dates: start: 20100218
  2. BEVACIZUMAB [Suspect]
     Indication: OVARIAN CANCER METASTATIC
     Dosage: DOSE OVER 30 - 90 MIN ON DAY 1 CYCLE: 21 DAYS LAST DOSE OF BEVACIZUMAB- 10 MAR 2010
     Route: 042
     Dates: start: 20100218
  3. DOCETAXEL [Suspect]
     Indication: OVARIAN CANCER METASTATIC
     Dosage: OVER 1 HOUR ON DAY 1  CYCLE: 21 DAYS
     Route: 042
     Dates: start: 20100218
  4. CARBOPLATIN [Suspect]
     Indication: OVARIAN CANCER METASTATIC
     Dosage: DOSE: 5 AUC OVER 30 MINUTES ON DAY 1
     Route: 042
     Dates: start: 20100218

REACTIONS (4)
  - COLITIS [None]
  - EPISTAXIS [None]
  - HYPERTENSION [None]
  - DEATH [None]
